FAERS Safety Report 19908843 (Version 1)
Quarter: 2021Q4

REPORT INFORMATION
  Report Type: Spontaneous
  Country: IN (occurrence: IN)
  Receive Date: 20211001
  Receipt Date: 20211001
  Transmission Date: 20220304
  Serious: Yes (Other)
  Sender: FDA-Public Use
  Company Number: IN-INSUD PHARMA-2109IN02085

PATIENT

DRUGS (1)
  1. NUVESSA [Suspect]
     Active Substance: METRONIDAZOLE
     Indication: Liver abscess
     Dosage: 400 MILLIGRAM, BD
     Route: 065

REACTIONS (8)
  - Cerebellar syndrome [Recovering/Resolving]
  - Neurotoxicity [Recovering/Resolving]
  - Gait disturbance [Recovering/Resolving]
  - Dysarthria [Recovering/Resolving]
  - Eye movement disorder [Recovering/Resolving]
  - Abdominal tenderness [Recovering/Resolving]
  - Nystagmus [Recovering/Resolving]
  - Dysdiadochokinesis [Recovering/Resolving]
